FAERS Safety Report 5417245-4 (Version None)
Quarter: 2007Q3

REPORT INFORMATION
  Report Type: 
  Country: None (occurrence: None)
  Receive Date: 20070816
  Receipt Date: 20070810
  Transmission Date: 20080115
  Serious: Yes (Hospitalization, Other)
  Sender: FDA-Public Use
  Company Number: US-SHR-US-2007-025150

PATIENT
  Age: 59 Year
  Sex: Female
  Weight: 71.655 kg

DRUGS (8)
  1. BETASERON [Suspect]
     Dosage: 8 MIU, EVERY 2D
     Route: 058
     Dates: start: 19970904
  2. ZESTRIL [Concomitant]
     Indication: HYPERTENSION
     Dosage: 5 MG, 1X/DAY
     Route: 048
  3. MOTIDE [Concomitant]
     Indication: HYPERTENSION
     Dosage: 25 MG, 1X/DAY
     Route: 048
  4. SYNTHROID [Concomitant]
     Dosage: 75 A?G, UNK
     Route: 048
  5. LIPITOR [Concomitant]
     Dosage: 20 MG, UNK
     Route: 048
  6. VITAMIN CAP [Concomitant]
     Dosage: UNK, 1X/DAY
  7. CALCIUM CHLORIDE [Concomitant]
     Dosage: UNK, 1X/DAY
  8. ADVIL LIQUI-GELS [Concomitant]
     Dosage: UNK, EVERY 2D

REACTIONS (5)
  - COLON CANCER [None]
  - HYPOTHYROIDISM [None]
  - LYMPHADENOPATHY [None]
  - PANCREATIC NEOPLASM [None]
  - THYROID NEOPLASM [None]
